FAERS Safety Report 12578270 (Version 1)
Quarter: 2016Q3

REPORT INFORMATION
  Report Type: Spontaneous
  Country: US (occurrence: None)
  Receive Date: 20160720
  Receipt Date: 20160720
  Transmission Date: 20161109
  Serious: Yes (Life-Threatening, Hospitalization, Disabling)
  Sender: FDA-Public Use
  Company Number: None

PATIENT
  Age: 70 Year
  Sex: Female
  Weight: 66.68 kg

DRUGS (1)
  1. LEXISCAN [Suspect]
     Active Substance: REGADENOSON

REACTIONS (3)
  - Cardiac disorder [None]
  - Discomfort [None]
  - Myocardial infarction [None]

NARRATIVE: CASE EVENT DATE: 20160518
